FAERS Safety Report 5331272-7 (Version None)
Quarter: 2007Q2

REPORT INFORMATION
  Report Type: 
  Country: None (occurrence: None)
  Receive Date: 20070522
  Receipt Date: 20070430
  Transmission Date: 20071010
  Serious: Yes (Hospitalization)
  Sender: FDA-Public Use
  Company Number: DE-JNJFOC-20070406091

PATIENT
  Sex: Male

DRUGS (15)
  1. TRAMADOL HCL [Suspect]
     Route: 048
  2. TRAMADOL HCL [Suspect]
     Route: 048
  3. TRAMADOL HCL [Suspect]
     Route: 048
  4. TRAMADOL HCL [Suspect]
     Route: 048
  5. TRAMADOL HCL [Suspect]
     Route: 048
  6. TRAMADOL HCL [Suspect]
     Route: 048
  7. TRAMADOL HCL [Suspect]
     Route: 048
  8. TRAMADOL HCL [Suspect]
     Route: 048
  9. TRAMADOL HCL [Suspect]
     Route: 048
  10. TRAMADOL HCL [Suspect]
     Indication: EAR PAIN
     Route: 048
  11. DIAZEPAM [Suspect]
     Indication: DRUG USE FOR UNKNOWN INDICATION
     Route: 065
  12. ALL OTHER THERAPEUTIC PRODUCTS [Concomitant]
     Indication: SELF-MEDICATION
     Route: 065
  13. LISINOPRIL [Concomitant]
     Route: 065
  14. TAMSULOSIN HCL [Concomitant]
     Route: 065
  15. MIRTAZAPINE [Concomitant]
     Route: 065

REACTIONS (4)
  - CONSTIPATION [None]
  - DIVERTICULUM [None]
  - DRUG ABUSER [None]
  - OVERDOSE [None]
